FAERS Safety Report 8267723 (Version 4)
Quarter: 2014Q1

REPORT INFORMATION
  Report Type: Report from Study
  Country: AT (occurrence: AT)
  Receive Date: 20111129
  Receipt Date: 20140107
  Transmission Date: 20141002
  Serious: Yes (Hospitalization, Other)
  Sender: FDA-Public Use
  Company Number: PHHO2011AT12294

PATIENT
  Sex: 0

DRUGS (4)
  1. CERTICAN [Suspect]
     Indication: RENAL TRANSPLANT
     Dosage: 20 U PRN, BID
     Route: 048
     Dates: start: 20110315, end: 20110714
  2. MYFORTIC [Suspect]
     Indication: RENAL TRANSPLANT
     Dosage: 20 U, PRN, BID
     Route: 048
     Dates: start: 20110315, end: 20110714
  3. PREDNISOLON [Concomitant]
     Indication: RENAL TRANSPLANT
     Dosage: 20 U, PRN, BID
     Route: 048
     Dates: start: 20110315, end: 20110714
  4. PREDNISOLON [Concomitant]
     Dosage: UNK
     Dates: start: 20110716

REACTIONS (6)
  - Pyrexia [Recovered/Resolved]
  - Gingivitis [Recovered/Resolved]
  - Stomatitis [Recovered/Resolved]
  - Leukopenia [Recovered/Resolved]
  - Neutropenia [Recovered/Resolved]
  - Thrombophlebitis [Recovered/Resolved]
